FAERS Safety Report 4718961-X (Version None)
Quarter: 2005Q3

REPORT INFORMATION
  Report Type: 
  Country: None (occurrence: None)
  Receive Date: 20050719
  Receipt Date: 20050510
  Transmission Date: 20060218
  Serious: Yes (Other)
  Sender: FDA-Public Use
  Company Number: 215946

PATIENT
  Age: 72 Year
  Sex: Female
  Weight: 76 kg

DRUGS (9)
  1. MABTHERA(RITUXIMAB) CONC FOR SOLUTION FOR INFUSION [Suspect]
     Indication: NON-HODGKIN'S LYMPHOMA
     Dosage: 640 MG, Q28D, INTRAVENOUS
     Route: 042
     Dates: start: 20050207
  2. FLUDARABINE PHOSPHATE [Suspect]
     Indication: NON-HODGKIN'S LYMPHOMA
     Dosage: 40 MG, Q28D, INTRAVENOUS
     Route: 042
     Dates: start: 20050125
  3. MITOXANTRONE [Suspect]
     Indication: NON-HODGKIN'S LYMPHOMA
     Dosage: 17 MG, Q28D, INTRAVENOUS
     Route: 042
     Dates: start: 20050125
  4. DEXAMETHASONE [Suspect]
     Indication: NON-HODGKIN'S LYMPHOMA
     Dosage: 10 MG, QDX3D/28DC, INTRAVENOUS
     Route: 042
     Dates: start: 20050125
  5. INDAPAMIDE [Concomitant]
  6. LAMIVUDINE [Concomitant]
  7. CO-TRIMAZOLE (TRIMETHOPRIM, SULFAMETHOXAZOLE) [Concomitant]
  8. CIPROFLOXACINE (CIPROFLOXACIN) [Concomitant]
  9. ITRACONAZOLE [Concomitant]

REACTIONS (1)
  - NEUTROPENIA [None]
